FAERS Safety Report 16609154 (Version 2)
Quarter: 2019Q3

REPORT INFORMATION
  Report Type: Spontaneous
  Country: US (occurrence: US)
  Receive Date: 20190722
  Receipt Date: 20190724
  Transmission Date: 20191004
  Serious: Yes (Other)
  Sender: FDA-Public Use
  Company Number: US-PFIZER INC-2019307077

PATIENT
  Age: 77 Year
  Sex: Male
  Weight: 127 kg

DRUGS (1)
  1. ATORVASTATIN CALCIUM. [Suspect]
     Active Substance: ATORVASTATIN CALCIUM
     Indication: BLOOD CHOLESTEROL ABNORMAL
     Dosage: 80 MG, 1X/DAY
     Route: 048

REACTIONS (6)
  - Arthralgia [Unknown]
  - Musculoskeletal pain [Unknown]
  - Toxicity to various agents [Unknown]
  - Musculoskeletal disorder [Not Recovered/Not Resolved]
  - Myalgia [Unknown]
  - Gait disturbance [Not Recovered/Not Resolved]
